FAERS Safety Report 7170219-8 (Version None)
Quarter: 2010Q4

REPORT INFORMATION
  Report Type: 
  Country: None (occurrence: None)
  Receive Date: 20101214
  Receipt Date: 20101214
  Transmission Date: 20110411
  Serious: No
  Sender: FDA-Public Use
  Company Number: None

PATIENT
  Sex: Female
  Weight: 104.3273 kg

DRUGS (1)
  1. NUCYNTA [Suspect]
     Indication: ARTHRALGIA
     Dosage: 1 TAB 3 X 5 DAY 3 TIMES MONTH
     Dates: start: 20101105, end: 20101107

REACTIONS (2)
  - DRUG EFFECT DECREASED [None]
  - NAUSEA [None]
